FAERS Safety Report 8977208 (Version 2)
Quarter: 2013Q1

REPORT INFORMATION
  Report Type: Spontaneous
  Country: US (occurrence: US)
  Receive Date: 20121220
  Receipt Date: 20130319
  Transmission Date: 20140127
  Serious: Yes (Hospitalization)
  Sender: FDA-Public Use
  Company Number: US-BAYER-2012-132466

PATIENT
  Age: 17 Year
  Sex: Female
  Weight: 81.63 kg

DRUGS (13)
  1. YAZ [Suspect]
     Indication: PREMENSTRUAL DYSPHORIC DISORDER
     Dosage: UNK
  2. YASMIN [Suspect]
     Indication: PREMENSTRUAL DYSPHORIC DISORDER
     Dosage: UNK
  3. HYDROCODONE/ACETAMINOPHEN [Concomitant]
  4. PENICILLIN V POTASSIUM [Concomitant]
  5. CHLORHEXIDINE GLUCONATE [Concomitant]
  6. ZITHROMAX [Concomitant]
     Indication: SINUSITIS
  7. AZITHROMYCIN [Concomitant]
  8. SERTRALIN [Concomitant]
  9. METHYLPREDNISOLONE [Concomitant]
  10. TYLENOL WITH CODEINE [Concomitant]
  11. PRO-AIR [Concomitant]
     Dosage: AS NEEDED
     Route: 045
  12. ASTHMA MEDICATION [Concomitant]
     Dosage: UNK
     Dates: start: 200108, end: 2008
  13. KELNOR 1/35 [Concomitant]

REACTIONS (4)
  - Pulmonary embolism [None]
  - Deep vein thrombosis [None]
  - Lung disorder [None]
  - Off label use [None]
